FAERS Safety Report 17434252 (Version 1)
Quarter: 2020Q1

REPORT INFORMATION
  Report Type: Spontaneous
  Country: CA (occurrence: CA)
  Receive Date: 20200219
  Receipt Date: 20200219
  Transmission Date: 20200409
  Serious: Yes (Other)
  Sender: FDA-Public Use
  Company Number: CA-AUROBINDO-AUR-APL-2020-008682

PATIENT
  Age: 62 Year
  Sex: Female
  Weight: 61.24 kg

DRUGS (1)
  1. PRAVASTATIN TABLET [Suspect]
     Active Substance: PRAVASTATIN
     Indication: DYSLIPIDAEMIA
     Dosage: 15 MILLIGRAM, ONCE A DAY
     Route: 048

REACTIONS (2)
  - Musculoskeletal pain [Recovered/Resolved]
  - Muscle spasms [Recovered/Resolved]
